FAERS Safety Report 19400873 (Version 2)
Quarter: 2021Q2

REPORT INFORMATION
  Report Type: Spontaneous
  Country: US (occurrence: US)
  Receive Date: 20210611
  Receipt Date: 20210622
  Transmission Date: 20210717
  Serious: Yes (Hospitalization, Other)
  Sender: FDA-Public Use
  Company Number: US-ASTRAZENECA-2021A494213

PATIENT
  Age: 905 Month
  Sex: Male
  Weight: 68.5 kg

DRUGS (2)
  1. GENERIC SYMBICORT [Suspect]
     Active Substance: BUDESONIDE\FORMOTEROL FUMARATE DIHYDRATE
     Indication: ASTHMA
     Dosage: 2 PUFFS TWICE A DAY
     Route: 055
  2. SYMBICORT [Suspect]
     Active Substance: BUDESONIDE\FORMOTEROL FUMARATE DIHYDRATE
     Indication: ASTHMA
     Dosage: 80/4.5MCG/D2 PUFFS TWICE A DAY
     Route: 055

REACTIONS (5)
  - Device malfunction [Unknown]
  - Medical device site infection [Not Recovered/Not Resolved]
  - Device delivery system issue [Unknown]
  - Loss of consciousness [Recovering/Resolving]
  - Product use issue [Unknown]

NARRATIVE: CASE EVENT DATE: 2020
